FAERS Safety Report 22162134 (Version 1)
Quarter: 2023Q1

REPORT INFORMATION
  Report Type: Spontaneous
  Country: RU (occurrence: RU)
  Receive Date: 20230331
  Receipt Date: 20230331
  Transmission Date: 20230418
  Serious: Yes (Other)
  Sender: FDA-Public Use
  Company Number: RU-002147023-NVSC2023RU066584

PATIENT
  Age: 22 Year
  Sex: Female

DRUGS (2)
  1. XOLAIR [Suspect]
     Active Substance: OMALIZUMAB
     Indication: Urticaria
     Route: 058
     Dates: start: 20221028, end: 20230317
  2. EBASTINE [Concomitant]
     Active Substance: EBASTINE
     Indication: Urticaria
     Dosage: UNK (WITHIN LAST 3 MONTHS)
     Dates: start: 2022

REACTIONS (1)
  - Thrombocytopenia [Unknown]

NARRATIVE: CASE EVENT DATE: 20230315
